FAERS Safety Report 5900321-7 (Version None)
Quarter: 2008Q3

REPORT INFORMATION
  Report Type: 
  Country: None (occurrence: None)
  Receive Date: 20080926
  Receipt Date: 20080918
  Transmission Date: 20090109
  Serious: Yes (Other)
  Sender: FDA-Public Use
  Company Number: B0538711A

PATIENT
  Sex: Female

DRUGS (1)
  1. NICORETTE [Suspect]
     Route: 048
     Dates: start: 20060101

REACTIONS (3)
  - DEPENDENCE [None]
  - EMPHYSEMA [None]
  - INCORRECT DRUG ADMINISTRATION DURATION [None]
